FAERS Safety Report 18928714 (Version 1)
Quarter: 2021Q1

REPORT INFORMATION
  Report Type: Spontaneous
  Country: FR (occurrence: FR)
  Receive Date: 20210223
  Receipt Date: 20210223
  Transmission Date: 20210420
  Serious: Yes (Hospitalization)
  Sender: FDA-Public Use
  Company Number: FR-SAMSUNG BIOEPIS-SB-2021-04159

PATIENT
  Age: 21 Year
  Sex: Female

DRUGS (1)
  1. ADALIMUMAB [Suspect]
     Active Substance: ADALIMUMAB
     Indication: IMMUNE-MEDIATED CYTOPENIA
     Route: 058
     Dates: start: 20201218

REACTIONS (2)
  - Product use in unapproved indication [Unknown]
  - Rash erythematous [Not Recovered/Not Resolved]

NARRATIVE: CASE EVENT DATE: 20210105
